FAERS Safety Report 16974952 (Version 1)
Quarter: 2019Q4

REPORT INFORMATION
  Report Type: Spontaneous
  Country: US (occurrence: US)
  Receive Date: 20190912
  Receipt Date: 20190912
  Transmission Date: 20200122
  Serious: Yes (Hospitalization)
  Sender: FDA-Public Use
  Company Number: None

PATIENT
  Age: 77 Year
  Sex: Male
  Weight: 80.3 kg

DRUGS (3)
  1. ABIRATERONE ACETATE. [Suspect]
     Active Substance: ABIRATERONE ACETATE
     Dates: end: 20190821
  2. CABAZITAXEL [Suspect]
     Active Substance: CABAZITAXEL
     Dates: end: 20190729
  3. PREDNISONE. [Suspect]
     Active Substance: PREDNISONE
     Dates: end: 20190821

REACTIONS (3)
  - Urinary tract infection [None]
  - Thrombocytopenia [None]
  - Urosepsis [None]

NARRATIVE: CASE EVENT DATE: 20190823
